FAERS Safety Report 5213924-2 (Version None)
Quarter: 2007Q1

REPORT INFORMATION
  Report Type: 
  Country: None (occurrence: None)
  Receive Date: 20070117
  Receipt Date: 20070103
  Transmission Date: 20070707
  Serious: Yes (Hospitalization)
  Sender: FDA-Public Use
  Company Number: 2007PV027723

PATIENT
  Age: 38 Year
  Sex: Female
  Weight: 122.0176 kg

DRUGS (10)
  1. BYETTA [Suspect]
     Indication: HYPERINSULINAEMIA
     Dosage: 5 MCG;BID; SC
     Route: 058
     Dates: start: 20060101, end: 20060306
  2. XOPENEX [Concomitant]
  3. ALBUTEROL [Concomitant]
  4. LOVONEX [Concomitant]
  5. AMBIEN [Concomitant]
  6. PLAVIX [Concomitant]
  7. XANAX [Concomitant]
  8. SOLU-MEDROL [Concomitant]
  9. ADVAIR DISKUS 100/50 [Concomitant]
  10. SINGULAIR [Concomitant]

REACTIONS (15)
  - ANGIOEDEMA [None]
  - ASTHMA [None]
  - CANDIDIASIS [None]
  - CONDITION AGGRAVATED [None]
  - DECREASED APPETITE [None]
  - DRUG HYPERSENSITIVITY [None]
  - HYPERGLYCAEMIA [None]
  - INJECTION SITE URTICARIA [None]
  - LARYNGITIS [None]
  - NAUSEA [None]
  - ORAL CANDIDIASIS [None]
  - PAIN [None]
  - PRURITUS [None]
  - RASH [None]
  - UPPER RESPIRATORY TRACT INFECTION [None]
